FAERS Safety Report 16989832 (Version 1)
Quarter: 2019Q4

REPORT INFORMATION
  Report Type: Spontaneous
  Country: US (occurrence: US)
  Receive Date: 20190919
  Receipt Date: 20190919
  Transmission Date: 20200122
  Serious: Yes (Hospitalization)
  Sender: FDA-Public Use
  Company Number: None

PATIENT
  Sex: Male

DRUGS (1)
  1. ENTECAVIR 0.5MG AUROBINDO PHARMA [Suspect]
     Active Substance: ENTECAVIR
     Indication: ORGAN TRANSPLANT
     Route: 048
     Dates: start: 20180811

REACTIONS (4)
  - Lumbar vertebral fracture [None]
  - Back pain [None]
  - Fall [None]
  - Muscle spasms [None]
